FAERS Safety Report 9657789 (Version 2)
Quarter: 2013Q4

REPORT INFORMATION
  Report Type: Report from Study
  Country: US (occurrence: US)
  Receive Date: 20131030
  Receipt Date: 20131030
  Transmission Date: 20140711
  Serious: Yes (Hospitalization, Other)
  Sender: FDA-Public Use
  Company Number: PHHO2013US013717

PATIENT
  Age: 70 Year
  Sex: Female
  Weight: 57.6 kg

DRUGS (17)
  1. AUY922 [Suspect]
     Indication: MYELOFIBROSIS
     Dosage: 70 MG/M2, QW
     Route: 042
     Dates: start: 20130513
  2. AUY922 [Suspect]
     Dosage: 70 MG/M2, QW
     Route: 042
  3. ACETYLSALICYLIC ACID [Suspect]
     Indication: MYELOFIBROSIS
     Dosage: 81 MG, QD
     Route: 048
  4. EXJADE [Concomitant]
     Indication: IRON OVERLOAD
     Dosage: 1125 MG, QD
     Route: 048
  5. ALLOPURINOL [Concomitant]
     Indication: GOUT
     Route: 048
  6. WELLBUTRIN [Concomitant]
     Indication: MAJOR DEPRESSION
     Dosage: 150 MG, QD
     Route: 048
  7. WELLBUTRIN [Concomitant]
     Dosage: 300 MG, QD
     Route: 048
  8. VENLAFAXINE [Concomitant]
     Indication: MAJOR DEPRESSION
     Dosage: 225 MG, QD
     Route: 048
  9. K-DUR [Concomitant]
     Indication: HYPOKALAEMIA
     Dosage: 20 UG, QD
     Route: 048
  10. CHOLECALCIFEROL [Concomitant]
     Indication: SUPPLEMENTATION THERAPY
     Dosage: 1000 IU, QD
     Route: 048
  11. COLCHICINE [Concomitant]
     Indication: GOUT
     Dosage: 0.6 MG, QD AS NEEDED
     Route: 048
  12. AMLODIPINE [Concomitant]
     Indication: HYPERTENSION
     Dosage: 10 MG, QD
     Route: 048
  13. VALSARTAN HCTZ [Concomitant]
     Indication: HYPERTENSION
     Dosage: 320/25 DAILY
     Route: 048
  14. ALPRAZOLAM [Concomitant]
     Indication: ANXIETY
     Dosage: 0.5 MG, QD AS NEEDED
     Route: 048
  15. ALPRAZOLAM [Concomitant]
     Dosage: 0.5 MG, QD AT BEDTIME
     Route: 048
  16. ARANESP [Concomitant]
     Indication: ANAEMIA
     Dosage: 150 MG, 2-3 WEEKS PRN
     Route: 058
  17. RED BLOOD CELLS [Concomitant]
     Dosage: 1-3 UNITS WEEKLY

REACTIONS (2)
  - Melaena [Recovering/Resolving]
  - Ileal ulcer [Unknown]
